FAERS Safety Report 5321462-1 (Version None)
Quarter: 2007Q2

REPORT INFORMATION
  Report Type: 
  Country: None (occurrence: None)
  Receive Date: 20070510
  Receipt Date: 20070503
  Transmission Date: 20071010
  Serious: Yes (Hospitalization)
  Sender: FDA-Public Use
  Company Number: B0469717A

PATIENT
  Age: 83 Year
  Sex: Female

DRUGS (12)
  1. AUGMENTIN '125' [Suspect]
     Indication: WOUND INFECTION
     Dosage: 1G THREE TIMES PER DAY
     Route: 048
     Dates: start: 20070405, end: 20070411
  2. LASIX [Suspect]
     Route: 048
     Dates: start: 20070405, end: 20070411
  3. FORLAX [Suspect]
     Route: 048
     Dates: start: 20070405, end: 20070411
  4. DIALGIREX [Suspect]
     Route: 048
     Dates: end: 20070411
  5. NEURONTIN [Concomitant]
  6. RIVOTRIL [Concomitant]
  7. OMEPRAZOLE [Concomitant]
  8. ZOLPIDEM [Concomitant]
  9. DIFFU-K [Concomitant]
  10. SPECIAFOLDINE [Concomitant]
     Dates: start: 20070407, end: 20070411
  11. CACIT 1000 [Concomitant]
     Dates: start: 20070407, end: 20070411
  12. TRANSFUSION [Concomitant]
     Dates: start: 20070404

REACTIONS (6)
  - EOSINOPHILIA [None]
  - INFLAMMATION [None]
  - LEUKOCYTOSIS [None]
  - PYREXIA [None]
  - RASH MACULO-PAPULAR [None]
  - RASH PAPULAR [None]
